FAERS Safety Report 19646055 (Version 1)
Quarter: 2021Q3

REPORT INFORMATION
  Report Type: Spontaneous
  Country: US (occurrence: US)
  Receive Date: 20210724
  Receipt Date: 20210724
  Transmission Date: 20211014
  Serious: No
  Sender: FDA-Public Use
  Company Number: None

PATIENT
  Age: 14 Year
  Sex: Male
  Weight: 63 kg

DRUGS (1)
  1. NEUTROGENA BEACH DEFENSE WATER PLUS SUN PROTECTION SUNSCREEN BROAD SPECTRUM SPF 60 PLUS [Suspect]
     Active Substance: AVOBENZONE\HOMOSALATE\OCTISALATE\OCTOCRYLENE
     Indication: PROPHYLAXIS AGAINST SOLAR RADIATION
     Dosage: ?          OTHER STRENGTH:60+ SPF;QUANTITY:17 OUNCE(S);OTHER FREQUENCY:EVERY TWO HOURS;?
     Route: 061
     Dates: start: 20210710, end: 20210715

REACTIONS (2)
  - Recalled product administered [None]
  - Cough [None]

NARRATIVE: CASE EVENT DATE: 20210714
